FAERS Safety Report 13689874 (Version 1)
Quarter: 2017Q2

REPORT INFORMATION
  Report Type: Spontaneous
  Country: US (occurrence: US)
  Receive Date: 20170626
  Receipt Date: 20170626
  Transmission Date: 20170830
  Serious: No
  Sender: FDA-Public Use
  Company Number: US-NEPHRON PHARMACEUTICALS CORPORATION-2022503

PATIENT
  Age: 50 Year
  Sex: Female
  Weight: 59.09 kg

DRUGS (1)
  1. ALBUTEROL SULFATE INHALATION SOLUTION, 0.083% [Suspect]
     Active Substance: ALBUTEROL SULFATE
     Indication: RESPIRATORY SYMPTOM
     Route: 055

REACTIONS (3)
  - Product odour abnormal [Recovered/Resolved]
  - Drug ineffective [Recovered/Resolved]
  - Product taste abnormal [Recovered/Resolved]

NARRATIVE: CASE EVENT DATE: 20170619
